FAERS Safety Report 6690466-9 (Version None)
Quarter: 2010Q2

REPORT INFORMATION
  Report Type: 
  Country: None (occurrence: None)
  Receive Date: 20100421
  Receipt Date: 20100416
  Transmission Date: 20101027
  Serious: Yes (Other)
  Sender: FDA-Public Use
  Company Number: US-ELI_LILLY_AND_COMPANY-US200912005775

PATIENT
  Sex: Female

DRUGS (7)
  1. HUMALOG [Suspect]
     Indication: DIABETES MELLITUS
     Dosage: 2 U, EACH MORNING
  2. HUMALOG [Suspect]
     Dosage: 3 U, UNK
  3. HUMALOG [Suspect]
     Dosage: 3.5 U, EACH EVENING
  4. HUMALOG [Suspect]
     Dosage: UNK, AS NEEDED
  5. LANTUS [Concomitant]
     Dosage: 14 U, EACH MORNING
     Dates: start: 19940101
  6. LANTUS [Concomitant]
     Dosage: UNK, 3/D
     Dates: start: 19940101
  7. PHOSPHO-SODA [Concomitant]

REACTIONS (6)
  - BLOOD GLUCOSE INCREASED [None]
  - CATARACT [None]
  - DEVICE MISUSE [None]
  - EYE HAEMORRHAGE [None]
  - INCORRECT DOSE ADMINISTERED [None]
  - RENAL FAILURE [None]
